FAERS Safety Report 8824037 (Version 2)
Quarter: 2012Q4

REPORT INFORMATION
  Report Type: 
  Country: US (occurrence: US)
  Receive Date: 20121004
  Receipt Date: 20121011
  Transmission Date: 20130627
  Serious: Yes (Other)
  Sender: FDA-Public Use
  Company Number: US-AMGEN-USASP2012061528

PATIENT
  Age: 57 Year
  Sex: Male
  Weight: 89.8 kg

DRUGS (25)
  1. ENBREL [Suspect]
     Indication: RHEUMATOID ARTHRITIS
     Dosage: UNK
  2. ANDROGEL [Concomitant]
     Indication: BLOOD TESTOSTERONE DECREASED
     Dosage: UNK
     Dates: start: 2007
  3. ANDROGEL [Concomitant]
     Indication: FATIGUE
  4. FOLIC ACID [Concomitant]
     Dosage: UNK
  5. OMEPRAZOLE [Concomitant]
     Dosage: UNK
  6. PLAQUENIL                          /00072602/ [Concomitant]
     Indication: RHEUMATOID ARTHRITIS
     Dosage: UNK
  7. PROMETHAZINE [Concomitant]
     Indication: NAUSEA
     Dosage: UNK
  8. ASPIRIN [Concomitant]
     Indication: CARDIAC DISORDER
     Dosage: 81 mg, UNK
  9. COQ-10 [Concomitant]
     Indication: SUPPLEMENTATION THERAPY
     Dosage: UNK
  10. DIOVAN [Concomitant]
     Indication: HYPERTENSION
     Dosage: UNK
  11. CALCIUM + VITAMIN D [Concomitant]
     Indication: SUPPLEMENTATION THERAPY
     Dosage: UNK
  12. CITALOPRAM [Concomitant]
     Indication: DEPRESSION
     Dosage: UNK
  13. CARVEDILOL [Concomitant]
     Indication: CARDIAC DISORDER
     Dosage: UNK
  14. CARVEDILOL [Concomitant]
     Indication: HYPERTENSION
  15. AMITRIPTYLINE [Concomitant]
     Indication: PAIN
     Dosage: UNK
  16. AMITRIPTYLINE [Concomitant]
     Indication: SLEEP DISORDER
  17. METHADONE [Concomitant]
     Indication: PAIN
     Dosage: UNK
  18. FOLBIC [Concomitant]
     Dosage: UNK
  19. LIDODERM [Concomitant]
     Indication: PAIN
     Dosage: UNK
  20. FISH OIL [Concomitant]
     Indication: SUPPLEMENTATION THERAPY
     Dosage: UNK
  21. PERI-COLACE [Concomitant]
     Indication: CONSTIPATION
     Dosage: UNK
  22. GAS X [Concomitant]
     Indication: FLATULENCE
     Dosage: UNK
  23. ALEVE [Concomitant]
     Indication: PAIN
     Dosage: As required
  24. BISACODYL [Concomitant]
     Indication: CONSTIPATION
     Dosage: UNK
  25. IMITREX                            /01044801/ [Concomitant]
     Indication: MIGRAINE
     Dosage: UNK

REACTIONS (9)
  - Ejection fraction abnormal [Unknown]
  - Blood testosterone abnormal [Unknown]
  - Rheumatoid arthritis [Unknown]
  - Acne [Unknown]
  - Chills [Recovered/Resolved]
  - Respiratory tract congestion [Recovered/Resolved]
  - Upper respiratory tract infection [Recovered/Resolved]
  - Herpes zoster [Recovered/Resolved]
  - Influenza [Recovered/Resolved]
